FAERS Safety Report 5637473-2 (Version None)
Quarter: 2008Q1

REPORT INFORMATION
  Report Type: 
  Country: None (occurrence: None)
  Receive Date: 20080225
  Receipt Date: 20080221
  Transmission Date: 20080703
  Serious: Yes (Other)
  Sender: FDA-Public Use
  Company Number: DE-BOEHRINGER INGELHEIM GMBH, GERMANY-2007-DE-03957GD

PATIENT

DRUGS (2)
  1. MORPHINE [Suspect]
     Indication: PROCEDURAL PAIN
     Route: 042
  2. MORPHINE [Suspect]
     Dosage: BOLUS DOSE OF UP TO 20 MG PER 2 H, MAXIMUM OF 240 MG/24 H
     Route: 042

REACTIONS (1)
  - HERNIA [None]
